FAERS Safety Report 4816432-3 (Version None)
Quarter: 2005Q4

REPORT INFORMATION
  Report Type: 
  Country: None (occurrence: None)
  Receive Date: 20051028
  Receipt Date: 20051012
  Transmission Date: 20060501
  Serious: Yes (Hospitalization)
  Sender: FDA-Public Use
  Company Number: DSA_27301_2005

PATIENT
  Age: 77 Year
  Sex: Female

DRUGS (26)
  1. DILTIAZEM HYDROCHLORIDE [Suspect]
     Dosage: DF; PO
     Route: 048
     Dates: start: 20050625, end: 20050629
  2. DILTIAZEM HCL [Suspect]
     Dosage: DF; PO
     Route: 048
     Dates: start: 20050629, end: 20050706
  3. CORDARONE [Suspect]
     Indication: ATRIAL FIBRILLATION
     Dosage: 200 MG Q DAY; PO
     Route: 048
     Dates: start: 20050621, end: 20050706
  4. CORDARONE [Suspect]
     Indication: ATRIAL FIBRILLATION
     Dosage: 200 MG Q DAY; PO
     Route: 048
     Dates: end: 20050601
  5. NOROXIN [Suspect]
     Indication: URINARY TRACT INFECTION
     Dosage: 400 MG BID; PO
     Route: 048
     Dates: start: 20050715, end: 20050721
  6. RULID [Suspect]
     Indication: CHEST X-RAY
     Dosage: 150 MG BID; PO
     Route: 048
     Dates: start: 20050721, end: 20050803
  7. RULID [Suspect]
     Indication: GENERAL PHYSICAL HEALTH DETERIORATION
     Dosage: 150 MG BID; PO
     Route: 048
     Dates: start: 20050721, end: 20050803
  8. RULID [Suspect]
     Indication: PYREXIA
     Dosage: 150 MG BID; PO
     Route: 048
     Dates: start: 20050721, end: 20050803
  9. DEROXAT [Suspect]
     Dosage: 20 MG Q DAY; PO
     Route: 048
     Dates: start: 20050711, end: 20050721
  10. LASILIX [Concomitant]
  11. TRIATEC [Concomitant]
  12. TENORMIN [Concomitant]
  13. TENORMIN [Concomitant]
  14. PREVISCAN [Concomitant]
  15. PREVISCAN [Concomitant]
  16. PREVISCAN [Concomitant]
  17. FORADIL [Concomitant]
  18. FORADIL [Concomitant]
  19. MIXTARD HUMAN 70/30 [Concomitant]
  20. OXEOL [Concomitant]
  21. OXEOL [Concomitant]
  22. OXEOL [Concomitant]
  23. MIFLASONE [Concomitant]
  24. BRONCHODUAL [Concomitant]
  25. TEMERIT [Concomitant]
  26. SOLU-MEDROL [Concomitant]

REACTIONS (2)
  - EOSINOPHILIC PNEUMONIA [None]
  - URINARY TRACT INFECTION [None]
